FAERS Safety Report 21357349 (Version 2)
Quarter: 2022Q4

REPORT INFORMATION
  Report Type: Spontaneous
  Country: IN (occurrence: IN)
  Receive Date: 20220921
  Receipt Date: 20221025
  Transmission Date: 20230113
  Serious: Yes (Other)
  Sender: FDA-Public Use
  Company Number: IN-NOVARTISPH-NVSC2022IN210689

PATIENT
  Age: 75 Year
  Sex: Female

DRUGS (3)
  1. BROLUCIZUMAB [Suspect]
     Active Substance: BROLUCIZUMAB
     Indication: Choroidal neovascularisation
     Dosage: UNK
     Route: 065
     Dates: start: 20220424
  2. BROLUCIZUMAB [Suspect]
     Active Substance: BROLUCIZUMAB
     Dosage: 0.05 ML, FREQUENCY PRN (AS NEEDED)
     Route: 047
     Dates: start: 20220727
  3. BROLUCIZUMAB [Suspect]
     Active Substance: BROLUCIZUMAB
     Dosage: UNK (RIGHT EYE)
     Route: 065
     Dates: start: 20220801

REACTIONS (2)
  - Optic neuritis [Unknown]
  - Keratitis [Unknown]

NARRATIVE: CASE EVENT DATE: 20220827
